FAERS Safety Report 5643059-6 (Version None)
Quarter: 2008Q1

REPORT INFORMATION
  Report Type: 
  Country: None (occurrence: None)
  Receive Date: 20080227
  Receipt Date: 20080227
  Transmission Date: 20080703
  Serious: No
  Sender: FDA-Public Use
  Company Number: None

PATIENT
  Age: 50 Year
  Sex: Male
  Weight: 92.53 kg

DRUGS (1)
  1. CELECOXIB [Suspect]
     Indication: ARTHRITIS
     Dosage: 200MG BID PO
     Route: 048
     Dates: start: 20071201, end: 20080108

REACTIONS (4)
  - ACUTE SINUSITIS [None]
  - DRY MOUTH [None]
  - EYE PRURITUS [None]
  - RASH [None]
